FAERS Safety Report 7202977-8 (Version None)
Quarter: 2010Q4

REPORT INFORMATION
  Report Type: 
  Country: None (occurrence: None)
  Receive Date: 20101229
  Receipt Date: 20101222
  Transmission Date: 20110411
  Serious: Yes (Other)
  Sender: FDA-Public Use
  Company Number: BE-PFIZER INC-2010178920

PATIENT
  Age: 49 Year
  Sex: Female
  Weight: 73.2 kg

DRUGS (9)
  1. SOMATROPIN [Suspect]
     Indication: HYPOPITUITARISM
     Dosage: 1.1 MG, 1X/DAY
     Dates: start: 20090203
  2. LEVOTHYROXINE [Concomitant]
     Indication: BLOOD THYROID STIMULATING HORMONE DECREASED
     Dosage: 50 UG, 1X/DAY
     Route: 048
     Dates: start: 20080610
  3. LEVOTHYROXINE [Concomitant]
     Indication: PRIMARY HYPOTHYROIDISM
  4. RANITIDINE [Concomitant]
     Indication: GASTROINTESTINAL DISORDER
     Dosage: 150 MG, 1X/DAY
     Route: 048
     Dates: start: 20080315
  5. MIZOLLEN [Concomitant]
     Indication: SEASONAL ALLERGY
     Dosage: 10 MG, 1X/DAY
     Route: 048
     Dates: start: 20080315
  6. SERETIDE EVOHALER [Concomitant]
     Indication: HYPERSENSITIVITY
     Dosage: 550 UG, 2X/DAY
     Route: 048
     Dates: start: 20060807
  7. YASMIN [Concomitant]
     Indication: BLOOD LUTEINISING HORMONE DECREASED
     Dosage: UNK
     Route: 048
     Dates: start: 20060807
  8. YASMIN [Concomitant]
     Indication: BLOOD FOLLICLE STIMULATING HORMONE DECREASED
  9. YASMIN [Concomitant]
     Indication: HYPOGONADISM

REACTIONS (1)
  - PITUITARY TUMOUR BENIGN [None]
